FAERS Safety Report 5900019-5 (Version None)
Quarter: 2008Q3

REPORT INFORMATION
  Report Type: 
  Country: None (occurrence: None)
  Receive Date: 20080925
  Receipt Date: 20080925
  Transmission Date: 20090109
  Serious: Yes (Hospitalization, Other)
  Sender: FDA-Public Use
  Company Number: None

PATIENT
  Age: 35 Year
  Sex: Female
  Weight: 80.7403 kg

DRUGS (1)
  1. REBIF [Suspect]
     Indication: MULTIPLE SCLEROSIS
     Dosage: 44 MCG 3 TIMES A WEEK IM
     Route: 030
     Dates: start: 20080110, end: 20080520

REACTIONS (5)
  - AUTOIMMUNE THYROIDITIS [None]
  - INFLUENZA [None]
  - PRURITUS [None]
  - SCAR [None]
  - THYROID NEOPLASM [None]
